FAERS Safety Report 18527416 (Version 13)
Quarter: 2023Q1

REPORT INFORMATION
  Report Type: Spontaneous
  Country: US (occurrence: US)
  Receive Date: 20201120
  Receipt Date: 20230208
  Transmission Date: 20230418
  Serious: Yes (Other)
  Sender: FDA-Public Use
  Company Number: US-GLAXOSMITHKLINE-US2020AMR224492

PATIENT

DRUGS (12)
  1. ZEJULA [Suspect]
     Active Substance: NIRAPARIB
     Indication: Ovarian cancer
     Dosage: 300 MG, QD
     Dates: start: 20200220
  2. ZEJULA [Suspect]
     Active Substance: NIRAPARIB
     Dosage: 200 MG, QD
     Dates: start: 20200926
  3. ZEJULA [Suspect]
     Active Substance: NIRAPARIB
     Dosage: 100 MG, QD
     Dates: start: 20201109, end: 202011
  4. ZEJULA [Suspect]
     Active Substance: NIRAPARIB
     Dosage: 100 MG, QD
  5. ZEJULA [Suspect]
     Active Substance: NIRAPARIB
     Dosage: 200 MG, QD
  6. ZEJULA [Suspect]
     Active Substance: NIRAPARIB
     Dosage: 100 MG, QD
     Route: 048
  7. ZEJULA [Suspect]
     Active Substance: NIRAPARIB
     Dosage: 100 MG, QD
     Route: 048
  8. ZEJULA [Suspect]
     Active Substance: NIRAPARIB
     Dosage: 100MG, QD
     Route: 048
  9. ZEJULA [Suspect]
     Active Substance: NIRAPARIB
     Dosage: 100 MG, QD
  10. ZEJULA [Suspect]
     Active Substance: NIRAPARIB
     Dosage: 100 MG, QD
     Route: 048
     Dates: start: 20211120
  11. ZEJULA [Suspect]
     Active Substance: NIRAPARIB
     Dosage: 100 MG, QD
     Route: 048
  12. ZEJULA [Suspect]
     Active Substance: NIRAPARIB
     Dosage: 100 MG, QD

REACTIONS (29)
  - Angina pectoris [Not Recovered/Not Resolved]
  - Neuropathy peripheral [Unknown]
  - Platelet count decreased [Not Recovered/Not Resolved]
  - Palpitations [Unknown]
  - Blood pressure increased [Recovering/Resolving]
  - Sensory disturbance [Recovering/Resolving]
  - Fatigue [Not Recovered/Not Resolved]
  - Laboratory test abnormal [Not Recovered/Not Resolved]
  - Gastrointestinal disorder [Not Recovered/Not Resolved]
  - Faeces discoloured [Not Recovered/Not Resolved]
  - Abnormal faeces [Not Recovered/Not Resolved]
  - Flatulence [Not Recovered/Not Resolved]
  - Faeces soft [Not Recovered/Not Resolved]
  - Faecal volume decreased [Not Recovered/Not Resolved]
  - Chest discomfort [Unknown]
  - Carbohydrate antigen 125 increased [Unknown]
  - Oral pain [Unknown]
  - Throat lesion [Unknown]
  - Tongue discolouration [Unknown]
  - Hypertension [Recovering/Resolving]
  - Diarrhoea [Not Recovered/Not Resolved]
  - Insomnia [Recovering/Resolving]
  - Nausea [Unknown]
  - Stomatitis [Not Recovered/Not Resolved]
  - Toothache [Not Recovered/Not Resolved]
  - Nasopharyngitis [Not Recovered/Not Resolved]
  - Loose tooth [Unknown]
  - Product dose omission issue [Unknown]
  - Product dose omission in error [Unknown]
